FAERS Safety Report 4880015-X (Version None)
Quarter: 2006Q1

REPORT INFORMATION
  Report Type: 
  Country: None (occurrence: None)
  Receive Date: 20060111
  Receipt Date: 20051222
  Transmission Date: 20060701
  Serious: Yes (Hospitalization)
  Sender: FDA-Public Use
  Company Number: US_0507119863

PATIENT
  Sex: Female

DRUGS (19)
  1. ZYPREXA [Suspect]
     Dosage: 20 MG,
     Dates: start: 20040101, end: 20040101
  2. TRICOR [Concomitant]
  3. PROTONIX [Concomitant]
  4. DEPAKOTE - SLOW RELEASE (VALPROATE SEMISODIUM) [Concomitant]
  5. HYDROXYZINE PAMOATE [Concomitant]
  6. ALTACE [Concomitant]
  7. METFORMIN HCL [Concomitant]
  8. MIRTAZAPINE [Concomitant]
  9. DOXEPIN HCL [Concomitant]
  10. LIPITOR [Concomitant]
  11. DIAZEPAM [Concomitant]
  12. SEROQUEL [Concomitant]
  13. AMBIEN [Concomitant]
  14. CLONAZEPAM [Concomitant]
  15. FLUOXETINE HCL [Concomitant]
  16. IMIPRAMINE [Concomitant]
  17. PREMARIN [Concomitant]
  18. HALOPERIDOL [Concomitant]
  19. QUININE SULFATE [Concomitant]

REACTIONS (6)
  - CELLULITIS [None]
  - DIABETES MELLITUS [None]
  - DIABETIC ULCER [None]
  - ERYTHEMA [None]
  - NECROSIS [None]
  - SKIN DISCOLOURATION [None]
